APPROVED DRUG PRODUCT: PHENYLEPHRINE HYDROCHLORIDE
Active Ingredient: PHENYLEPHRINE HYDROCHLORIDE
Strength: 10%
Dosage Form/Route: SOLUTION/DROPS;OPHTHALMIC
Application: A215183 | Product #002 | TE Code: AT
Applicant: CAPLIN STERILES LTD
Approved: May 23, 2024 | RLD: No | RS: No | Type: RX